FAERS Safety Report 16830206 (Version 1)
Quarter: 2019Q3

REPORT INFORMATION
  Report Type: Report from Study
  Country: SG (occurrence: SG)
  Receive Date: 20190919
  Receipt Date: 20190919
  Transmission Date: 20191005
  Serious: Yes (Hospitalization, Other)
  Sender: FDA-Public Use
  Company Number: PHHO2016SG016806

PATIENT
  Age: 61 Year
  Sex: Female
  Weight: 71.4 kg

DRUGS (69)
  1. LCZ696 [Suspect]
     Active Substance: SACUBITRIL\VALSARTAN
     Dosage: 200 MG, BID
     Route: 048
     Dates: start: 20171213
  2. PLACEBO [Suspect]
     Active Substance: UNSPECIFIED INGREDIENT
     Indication: CARDIAC FAILURE
     Dosage: UNK
     Route: 048
     Dates: start: 20161003
  3. PLACEBO [Suspect]
     Active Substance: UNSPECIFIED INGREDIENT
     Dosage: UNK
     Route: 048
     Dates: start: 20161214, end: 20170422
  4. PLACEBO [Suspect]
     Active Substance: UNSPECIFIED INGREDIENT
     Dosage: UNK
     Route: 048
     Dates: start: 20171127
  5. FUROSEMIDE. [Concomitant]
     Active Substance: FUROSEMIDE
     Indication: CARDIAC FAILURE
     Dosage: 40 MG, QD
     Route: 048
     Dates: start: 20140928, end: 20161208
  6. SITAGLIPTIN [Concomitant]
     Active Substance: SITAGLIPTIN
     Indication: DIABETES MELLITUS
     Dosage: 100 MG, QD
     Route: 048
     Dates: start: 20150724
  7. METFORMIN [Concomitant]
     Active Substance: METFORMIN HYDROCHLORIDE
     Indication: DIABETES MELLITUS
     Dosage: 500 MG, QD, BD (QM)
     Route: 048
     Dates: start: 20161121, end: 20161208
  8. ATORVASTATIN [Concomitant]
     Active Substance: ATORVASTATIN
     Indication: HYPERLIPIDAEMIA
     Dosage: 20 MG, QD
     Route: 048
     Dates: start: 20151021
  9. CHARCOAL [Concomitant]
     Active Substance: ACTIVATED CHARCOAL
     Indication: DIARRHOEA
     Dosage: 500 MG, BD PRN
     Route: 048
     Dates: start: 20161107, end: 20161113
  10. DEXTROSE. [Concomitant]
     Active Substance: DEXTROSE
     Indication: PRODUCT USED FOR UNKNOWN INDICATION
     Dosage: 500 ML, QD
     Route: 042
     Dates: start: 20161112, end: 20161121
  11. FERROUS FUMARATE [Concomitant]
     Active Substance: FERROUS FUMARATE
     Indication: PRODUCT USED FOR UNKNOWN INDICATION
     Dosage: 400 MG, BID
     Route: 048
     Dates: start: 20160627
  12. KETOTOP [Concomitant]
     Dosage: 1 DF, Q12H
     Route: 061
     Dates: start: 20170908, end: 20170916
  13. RESONIUM [Concomitant]
     Active Substance: SODIUM POLYSTYRENE SULFONATE
     Indication: PRODUCT USED FOR UNKNOWN INDICATION
     Dosage: 15 G, TID
     Route: 048
  14. GABAPENTIN. [Concomitant]
     Active Substance: GABAPENTIN
     Indication: PAIN
     Dosage: 300 MG, ON
     Route: 048
     Dates: start: 20170814, end: 20170916
  15. LYNAE [Concomitant]
     Indication: SUPPLEMENTATION THERAPY
     Dosage: 1 DF, OM
     Route: 048
     Dates: end: 20170917
  16. INSULIN [Concomitant]
     Active Substance: INSULIN NOS
     Indication: DIABETES MELLITUS
     Dosage: 12 UNITS INJ BEFORE BREAKFAST
     Route: 065
     Dates: start: 20170121, end: 20170422
  17. OMEPRAZOL [Concomitant]
     Active Substance: OMEPRAZOLE
     Dosage: 20 MG, BID (ORAL BEFORE BREAKFAST AND DINNER)
     Route: 048
     Dates: start: 20160818
  18. KETOTOP [Concomitant]
     Indication: PAIN
     Dosage: 1 PATCH EVERY 12 HOURS
     Route: 065
     Dates: start: 20161121
  19. METOLAZONE. [Concomitant]
     Active Substance: METOLAZONE
     Indication: PRODUCT USED FOR UNKNOWN INDICATION
     Dosage: 2.5 MG, ONCE/SINGLE
     Route: 048
     Dates: start: 20161112, end: 20161121
  20. GAVISCON [Concomitant]
     Active Substance: ALUMINUM HYDROXIDE\MAGNESIUM CARBONATE
     Indication: PRODUCT USED FOR UNKNOWN INDICATION
     Dosage: UNK
     Route: 065
     Dates: start: 20161112, end: 20161121
  21. GTN [Concomitant]
     Active Substance: NITROGLYCERIN
     Indication: CHEST PAIN
     Dosage: 0.5 MG, QD
     Route: 048
     Dates: start: 20161209, end: 20170905
  22. LCZ696 [Suspect]
     Active Substance: SACUBITRIL\VALSARTAN
     Dosage: 200 MG, BID
     Route: 048
     Dates: start: 20161214, end: 20170422
  23. ISOSORBIDE MONONITRATE. [Concomitant]
     Active Substance: ISOSORBIDE MONONITRATE
     Indication: PROPHYLAXIS
     Dosage: 60 MG, QD (OM)
     Route: 048
     Dates: start: 20140414, end: 20170917
  24. INSULIN MIXTARD [Concomitant]
     Active Substance: INSULIN HUMAN
     Indication: DIABETES MELLITUS
     Dosage: 22 U, BEFORE BREAKFAST; 6 UNITS ONCE, 4 UNITS ONCE
     Route: 042
     Dates: start: 20160621
  25. INSULIN MIXTARD [Concomitant]
     Active Substance: INSULIN HUMAN
     Dosage: 12 U, BEFORE BRECKFAST
     Route: 042
     Dates: start: 20170801, end: 20170917
  26. DEXTROMETHORPHAN [Concomitant]
     Active Substance: DEXTROMETHORPHAN
     Indication: PRODUCT USED FOR UNKNOWN INDICATION
     Dosage: 10 ML, TID
     Route: 048
     Dates: start: 20161112, end: 20161121
  27. CARBIMAZOLE [Concomitant]
     Active Substance: CARBIMAZOLE
     Indication: HYPERTHYROIDISM
     Dosage: 5 MG, QD
     Route: 048
     Dates: start: 20170801, end: 20170917
  28. QV [Concomitant]
     Indication: DRY SKIN
     Dosage: 1 IU, PRN
     Route: 061
     Dates: start: 20170916, end: 20170916
  29. OMEPRAZOL [Concomitant]
     Active Substance: OMEPRAZOLE
     Indication: PROPHYLAXIS AGAINST GASTROINTESTINAL ULCER
     Dosage: 20 MG, BID
     Route: 048
     Dates: start: 20120319
  30. POTASSIUM CHLORIDE. [Concomitant]
     Active Substance: POTASSIUM CHLORIDE
     Dosage: 600 MG, BID
     Route: 048
     Dates: start: 20170825, end: 20170916
  31. LACTULOSE. [Concomitant]
     Active Substance: LACTULOSE
     Indication: CONSTIPATION
     Dosage: 10 ML, QD
     Route: 048
     Dates: start: 20161121
  32. MAGNESIUM [Concomitant]
     Active Substance: MAGNESIUM
     Indication: PRODUCT USED FOR UNKNOWN INDICATION
     Dosage: 250 MG, QD
     Route: 048
  33. LCZ696 [Suspect]
     Active Substance: SACUBITRIL\VALSARTAN
     Dosage: 200 MG, BID
     Route: 048
     Dates: start: 20170427, end: 20171116
  34. LCZ696 [Suspect]
     Active Substance: SACUBITRIL\VALSARTAN
     Dosage: 200 MG, BID
     Route: 048
     Dates: start: 20171127
  35. PLACEBO [Suspect]
     Active Substance: UNSPECIFIED INGREDIENT
     Dosage: UNK
     Route: 048
     Dates: start: 20170427, end: 20171116
  36. ASPIRIN. [Concomitant]
     Active Substance: ASPIRIN
     Indication: PERCUTANEOUS CORONARY INTERVENTION
     Dosage: 100 MG, QD
     Route: 048
     Dates: start: 20141024
  37. ASPIRIN. [Concomitant]
     Active Substance: ASPIRIN
     Dosage: 100 MG, QD
     Route: 048
     Dates: start: 20170825, end: 20170917
  38. ISOSORBIDE MONONITRATE. [Concomitant]
     Active Substance: ISOSORBIDE MONONITRATE
     Indication: HYPERTENSION
     Dosage: 60 MG, QD (OM)
     Route: 048
     Dates: start: 20140404
  39. LACTEOL FORT [Concomitant]
     Indication: DIARRHOEA
     Dosage: 1 SACHET BD PRN
     Route: 048
     Dates: start: 20161107, end: 20161113
  40. PENTOXIFYLLINE. [Concomitant]
     Active Substance: PENTOXIFYLLINE
     Indication: MYALGIA
     Dosage: 400 MG, BID
     Route: 048
     Dates: start: 20161117, end: 20170916
  41. BUMETANIDE. [Concomitant]
     Active Substance: BUMETANIDE
     Indication: CARDIAC FAILURE
     Dosage: 6.25 MG, BID
     Route: 048
     Dates: start: 20181114
  42. SENNOSIDE [Concomitant]
     Active Substance: SENNOSIDES
     Indication: CONSTIPATION
     Dosage: 2 DF
     Route: 048
     Dates: start: 20170830, end: 20170916
  43. AMLODIPINE [Concomitant]
     Active Substance: AMLODIPINE BESYLATE
     Indication: HYPERTENSION
     Dosage: 2.5 MG, OM
     Route: 048
     Dates: start: 20170805, end: 20170917
  44. LCZ696 [Suspect]
     Active Substance: SACUBITRIL\VALSARTAN
     Indication: CARDIAC FAILURE
     Dosage: 200 MG, BID
     Route: 048
     Dates: start: 20161003
  45. INSULIN MIXTARD [Concomitant]
     Active Substance: INSULIN HUMAN
     Dosage: 12 U, BEFORE DINNER
     Route: 042
     Dates: start: 20170731
  46. SITAGLIPTIN [Concomitant]
     Active Substance: SITAGLIPTIN
     Dosage: 100 MG, QD
     Route: 048
     Dates: start: 20161115
  47. SPAN K [Concomitant]
     Indication: SUPPLEMENTATION THERAPY
     Dosage: 600 MG, QD
     Route: 048
     Dates: start: 20161107, end: 20161112
  48. POTASSIUM CHLORIDE. [Concomitant]
     Active Substance: POTASSIUM CHLORIDE
     Indication: SUPPLEMENTATION THERAPY
     Dosage: 600 MG, BID
     Route: 048
     Dates: start: 20161121, end: 20161208
  49. POTASSIUM CHLORIDE. [Concomitant]
     Active Substance: POTASSIUM CHLORIDE
     Dosage: 600 MG, BID
     Route: 048
     Dates: start: 20161211, end: 20170422
  50. LACTULOSE. [Concomitant]
     Active Substance: LACTULOSE
     Dosage: 10 ML, TDS
     Route: 048
     Dates: start: 20170830, end: 20170916
  51. CARVEDILOL. [Concomitant]
     Active Substance: CARVEDILOL
     Indication: HYPERTENSION
     Dosage: 12.5 MG, BID
     Route: 048
     Dates: start: 20161210
  52. CARVEDILOL. [Concomitant]
     Active Substance: CARVEDILOL
     Indication: HEART RATE
     Dosage: 25 MG, BID
     Route: 048
     Dates: start: 20170916, end: 20170916
  53. DIGOXIN. [Concomitant]
     Active Substance: DIGOXIN
     Indication: HEART RATE
     Dosage: 125 UG, QD
     Route: 048
     Dates: start: 20161211, end: 20170422
  54. DIGOXIN. [Concomitant]
     Active Substance: DIGOXIN
     Dosage: 62.5 UG, QD
     Route: 048
     Dates: start: 20170916, end: 20170917
  55. METOCLOPRAMIDE. [Concomitant]
     Active Substance: METOCLOPRAMIDE
     Indication: PROPHYLAXIS OF NAUSEA AND VOMITING
     Dosage: 10 MG, PRN
     Route: 048
     Dates: start: 20170908, end: 20170916
  56. ERGOCALCIFEROL. [Concomitant]
     Active Substance: ERGOCALCIFEROL
     Indication: SUPPLEMENTATION THERAPY
     Dosage: 50 U, WEEKLY
     Route: 048
     Dates: start: 20170804, end: 20170915
  57. CORD SPIRIT [Concomitant]
     Indication: WOUND TREATMENT
     Dosage: 1 DF, UNK
     Route: 061
     Dates: start: 20170802, end: 20170916
  58. FUROSEMIDE. [Concomitant]
     Active Substance: FUROSEMIDE
     Dosage: 40 MG, QD
     Route: 048
     Dates: start: 20161211, end: 20170917
  59. ISOSORBIDE MONONITRATE. [Concomitant]
     Active Substance: ISOSORBIDE MONONITRATE
     Indication: CHEST PAIN
  60. ATORVASTATIN [Concomitant]
     Active Substance: ATORVASTATIN
     Dosage: 20 MG, QD
     Route: 048
     Dates: start: 20161114
  61. SPAN K [Concomitant]
     Dosage: UNK
     Route: 048
     Dates: start: 20161112, end: 20161121
  62. SUNITON [Concomitant]
     Active Substance: ACETAMINOPHEN\ORPHENADRINE CITRATE
     Indication: ANALGESIC THERAPY
     Dosage: 2 DF, Q8H
     Route: 048
     Dates: start: 20161121
  63. PARACETAMOL [Concomitant]
     Active Substance: ACETAMINOPHEN
     Indication: PAIN
     Dosage: 1 G, Q6H
     Route: 048
     Dates: start: 20170906, end: 20170916
  64. MELATONIN [Concomitant]
     Active Substance: MELATONIN
     Indication: PRODUCT USED FOR UNKNOWN INDICATION
     Dosage: 2 MG, UNK
     Route: 048
     Dates: start: 20170806, end: 20170915
  65. AUGMENTIN [Concomitant]
     Active Substance: AMOXICILLIN\CLAVULANATE POTASSIUM
     Dosage: 625 MG, BID
     Route: 048
     Dates: start: 20161111, end: 20161111
  66. PLACEBO [Suspect]
     Active Substance: UNSPECIFIED INGREDIENT
     Dosage: UNK
     Route: 048
     Dates: start: 20171213
  67. AUGMENTIN [Concomitant]
     Active Substance: AMOXICILLIN\CLAVULANATE POTASSIUM
     Indication: PRODUCT USED FOR UNKNOWN INDICATION
     Dosage: 625 MG, TID
     Route: 048
     Dates: start: 20161110, end: 20161110
  68. APIXABAN [Concomitant]
     Active Substance: APIXABAN
     Indication: PRODUCT USED FOR UNKNOWN INDICATION
     Dosage: 5 MG, BID
     Route: 048
     Dates: start: 20161110
  69. APIXABAN [Concomitant]
     Active Substance: APIXABAN
     Dosage: 5 MG, BID
     Route: 048
     Dates: start: 20161210, end: 20170422

REACTIONS (17)
  - Cholecystitis chronic [Recovered/Resolved]
  - Fluid overload [Recovered/Resolved]
  - Gastroenteritis [Recovered/Resolved]
  - Acute myocardial infarction [Recovered/Resolved]
  - Wrist fracture [Not Recovered/Not Resolved]
  - Hyperkalaemia [Recovered/Resolved]
  - Acute kidney injury [Recovered/Resolved]
  - Cardiac failure acute [Recovered/Resolved]
  - Fall [Recovered/Resolved with Sequelae]
  - Hypertensive urgency [Recovered/Resolved]
  - Cholecystitis acute [Recovered/Resolved with Sequelae]
  - Acute pulmonary oedema [Recovered/Resolved]
  - Chest pain [Recovered/Resolved]
  - Atrial flutter [Recovered/Resolved with Sequelae]
  - Rectal abscess [Recovered/Resolved]
  - Cardiac failure congestive [Recovered/Resolved]
  - Diabetes mellitus inadequate control [Recovered/Resolved]

NARRATIVE: CASE EVENT DATE: 20161031
